FAERS Safety Report 9399150 (Version 2)
Quarter: 2013Q3

REPORT INFORMATION
  Report Type: Report from Study
  Country: US (occurrence: US)
  Receive Date: 20130715
  Receipt Date: 20130802
  Transmission Date: 20140515
  Serious: No
  Sender: FDA-Public Use
  Company Number: US-ROCHE-1204836

PATIENT
  Age: 74 Year
  Sex: Male
  Weight: 93.52 kg

DRUGS (6)
  1. XELODA [Suspect]
     Indication: COLORECTAL CANCER METASTATIC
     Route: 048
     Dates: start: 20110831
  2. XELODA [Suspect]
     Route: 048
     Dates: start: 20120301
  3. XELODA [Suspect]
     Route: 048
     Dates: start: 20120430
  4. AVASTIN [Suspect]
     Indication: COLORECTAL CANCER METASTATIC
     Route: 042
     Dates: start: 20101101
  5. EFFIENT [Concomitant]
     Indication: ANTICOAGULANT THERAPY
  6. LOMOTIL [Concomitant]
     Indication: DIARRHOEA
     Route: 048

REACTIONS (8)
  - Diarrhoea [Not Recovered/Not Resolved]
  - Microalbuminuria [Unknown]
  - Blood creatinine increased [Unknown]
  - Blood albumin increased [Unknown]
  - Proteinuria [Not Recovered/Not Resolved]
  - Nausea [Recovered/Resolved]
  - Pain [Not Recovered/Not Resolved]
  - Platelet count decreased [Unknown]
